FAERS Safety Report 7448157-2 (Version None)
Quarter: 2011Q2

REPORT INFORMATION
  Report Type: 
  Country: None (occurrence: None)
  Receive Date: 20110429
  Receipt Date: 20100309
  Transmission Date: 20111010
  Serious: No
  Sender: FDA-Public Use
  Company Number: US-ASTRAZENECA-2008UW18663

PATIENT
  Age: 49 Year
  Sex: Female
  Weight: 47.6 kg

DRUGS (9)
  1. NEXIUM [Suspect]
     Route: 048
  2. NEXIUM [Suspect]
     Route: 048
  3. NEXIUM [Suspect]
     Indication: GASTROOESOPHAGEAL REFLUX DISEASE
     Route: 048
     Dates: start: 20080815
  4. NEXIUM [Suspect]
     Indication: DYSPEPSIA
     Route: 048
     Dates: start: 20080815
  5. SYNTHROID [Concomitant]
     Indication: AUTOIMMUNE THYROIDITIS
  6. NEXIUM [Suspect]
     Dosage: 40 MG 3-4 TIMES A WEEK
     Route: 048
  7. NEXIUM [Suspect]
     Route: 048
  8. NEXIUM [Suspect]
     Route: 048
  9. NEXIUM [Suspect]
     Dosage: 40 MG 3-4 TIMES A WEEK
     Route: 048

REACTIONS (7)
  - APHONIA [None]
  - DYSPHONIA [None]
  - LARYNGEAL OEDEMA [None]
  - LARYNGITIS [None]
  - DYSGEUSIA [None]
  - OROPHARYNGEAL PAIN [None]
  - THROAT IRRITATION [None]
